FAERS Safety Report 9099881 (Version 1)
Quarter: 2013Q1

REPORT INFORMATION
  Report Type: Spontaneous
  Country: IT (occurrence: IT)
  Receive Date: 20130214
  Receipt Date: 20130214
  Transmission Date: 20140127
  Serious: Yes (Hospitalization)
  Sender: FDA-Public Use
  Company Number: IT-JNJFOC-20130203418

PATIENT
  Age: 31 Year
  Sex: Female

DRUGS (2)
  1. KOLIBRI [Suspect]
     Indication: NECK PAIN
     Route: 048
     Dates: start: 20130112, end: 20130112
  2. INDOXEN [Suspect]
     Indication: NECK PAIN
     Route: 048
     Dates: start: 20130112, end: 20130112

REACTIONS (3)
  - Sopor [Recovered/Resolved]
  - Asthenia [Recovered/Resolved]
  - Malaise [Recovered/Resolved]
